FAERS Safety Report 5102761-5 (Version None)
Quarter: 2006Q3

REPORT INFORMATION
  Report Type: 
  Country: None (occurrence: None)
  Receive Date: 20060907
  Receipt Date: 20060828
  Transmission Date: 20061208
  Serious: Yes (Hospitalization)
  Sender: FDA-Public Use
  Company Number: 228808

PATIENT
  Age: 57 Year
  Sex: Male

DRUGS (1)
  1. RAPTIVA [Suspect]
     Indication: PSORIASIS
     Dosage: 0.143 MG/KG, SUBCUTANEOUS
     Route: 058
     Dates: start: 20050701

REACTIONS (3)
  - PLEURAL EFFUSION [None]
  - PULMONARY FIBROSIS [None]
  - RETROPERITONEAL FIBROSIS [None]
